FAERS Safety Report 8602388 (Version 3)
Quarter: 2014Q1

REPORT INFORMATION
  Report Type: Spontaneous
  Country: US (occurrence: US)
  Receive Date: 20120607
  Receipt Date: 20140107
  Transmission Date: 20141002
  Serious: Yes (Disabling, Other)
  Sender: FDA-Public Use
  Company Number: US-ASTRAZENECA-2012SE34771

PATIENT
  Age: 63 Year
  Sex: Female

DRUGS (14)
  1. NEXIUM [Suspect]
     Indication: GASTROOESOPHAGEAL REFLUX DISEASE
     Route: 048
     Dates: start: 2007
  2. NEXIUM [Suspect]
     Indication: GASTROOESOPHAGEAL REFLUX DISEASE
     Route: 048
     Dates: start: 20090126
  3. METFORMIN [Concomitant]
     Dates: start: 20090130
  4. GLEMEPRIDE [Concomitant]
     Dates: start: 20090130
  5. LISINOPRIL/HCTZ [Concomitant]
     Dates: start: 20090130
  6. LORTAB/ HYDROCODONE/APAP [Concomitant]
     Dates: start: 20090126
  7. KETOPROFEN [Concomitant]
  8. AMOXICILLIN [Concomitant]
     Dates: start: 20090323
  9. CEPHADYN [Concomitant]
     Dosage: 50/650 MG
     Dates: start: 20090323
  10. ZOLPIDEM TARTRATE [Concomitant]
     Dates: start: 20090511
  11. MECLIZINE [Concomitant]
     Dates: start: 20090921
  12. FLUCONAZOLE [Concomitant]
     Dates: start: 20090921
  13. ACTOS [Concomitant]
     Dates: start: 20091029
  14. CIPROFLOXACIN [Concomitant]
     Dates: start: 20091105

REACTIONS (9)
  - Neoplasm malignant [Unknown]
  - Disability [Unknown]
  - Osteoporosis [Unknown]
  - Multiple fractures [Unknown]
  - Bone disorder [Unknown]
  - Arthritis [Unknown]
  - Movement disorder [Unknown]
  - Osteoarthritis [Unknown]
  - Arthralgia [Unknown]
